FAERS Safety Report 8380939-5 (Version None)
Quarter: 2012Q2

REPORT INFORMATION
  Report Type: 
  Country: None (occurrence: None)
  Receive Date: 20120515
  Receipt Date: 20120507
  Transmission Date: 20120825
  Serious: Yes (Hospitalization, Other)
  Sender: FDA-Public Use
  Company Number: THYM-1001009

PATIENT
  Age: 38 Year
  Sex: Male
  Weight: 58 kg

DRUGS (16)
  1. METHYLPREDNISONE (METHYLPREDNISOLONE) [Concomitant]
  2. URSODEOXYCHOLIC ACID (URSODEOYCHOLIC ACID) [Concomitant]
  3. LIDOCAINE [Concomitant]
  4. METHYLPREDNISOLONE  SODIUM SUCCINATE (METHYLPREDNISOLONE SODIUM SUCCIN [Concomitant]
  5. MESNA [Concomitant]
  6. THYMOGLOBULIN [Suspect]
     Indication: BONE MARROW CONDITIONING REGIMEN
     Dosage: 145 MG, QD, INTRAVENOUS
     Route: 042
     Dates: start: 20090313, end: 20090316
  7. PREDNISOLONE ACETATE [Concomitant]
  8. BACTRIM [Concomitant]
  9. ACYCLOVIR [Concomitant]
  10. HYDROXYZINE HYROCHLORIDE (HYDROXYZINE HYDROCHLORIDE) [Concomitant]
  11. FUROSEMIDE [Concomitant]
  12. LANSOPRAZOLE (LANSOPROAZOLE) [Concomitant]
  13. CYCLOPHOSPHAMIDE [Concomitant]
  14. VORICONAZOLE [Concomitant]
  15. LOXOPROFEN SODIUM (LOXOPROFEN SODIUM) [Concomitant]
  16. MEROPENEM [Concomitant]

REACTIONS (4)
  - SINUS BRADYCARDIA [None]
  - CHRONIC GRAFT VERSUS HOST DISEASE [None]
  - STAPHYLOCOCCAL SEPSIS [None]
  - POST TRANSPLANT LYMPHOPROLIFERATIVE DISORDER [None]
